FAERS Safety Report 7111149-7 (Version None)
Quarter: 2010Q4

REPORT INFORMATION
  Report Type: 
  Country: None (occurrence: None)
  Receive Date: 20101118
  Receipt Date: 20091116
  Transmission Date: 20110411
  Serious: No
  Sender: FDA-Public Use
  Company Number: US-TEVA-215397USA

PATIENT
  Sex: Female
  Weight: 56.296 kg

DRUGS (3)
  1. ALBUTEROL SULFATE AUTOHALER [Suspect]
     Dosage: 2 PUFFS 3-4 TIMES
     Route: 055
     Dates: end: 20091109
  2. VALSARTAN [Concomitant]
     Indication: BLOOD PRESSURE
  3. ALENDRONATE SODIUM [Concomitant]

REACTIONS (1)
  - SKIN ODOUR ABNORMAL [None]
